FAERS Safety Report 7965983-1 (Version None)
Quarter: 2011Q4

REPORT INFORMATION
  Report Type: 
  Country: None (occurrence: None)
  Receive Date: 20111121
  Receipt Date: 20110927
  Transmission Date: 20120403
  Serious: No
  Sender: FDA-Public Use
  Company Number: 1000024262

PATIENT
  Age: 51 Year
  Sex: Female

DRUGS (7)
  1. NUVIGIL [Concomitant]
  2. VIIBRYD [Suspect]
     Indication: DEPRESSION
     Dosage: 10;20;40;80 MG (10 MG, 1 IN 1 D), ORAL
     Route: 048
     Dates: start: 20110823
  3. VIIBRYD [Suspect]
     Indication: DEPRESSION
     Dosage: 10;20;40;80 MG (10 MG, 1 IN 1 D), ORAL
     Route: 048
     Dates: start: 20110718, end: 20110724
  4. VIIBRYD [Suspect]
     Indication: DEPRESSION
     Dosage: 10;20;40;80 MG (10 MG, 1 IN 1 D), ORAL
     Route: 048
     Dates: start: 20110801, end: 20110822
  5. VIIBRYD [Suspect]
     Indication: DEPRESSION
     Dosage: 10;20;40;80 MG (10 MG, 1 IN 1 D), ORAL
     Route: 048
     Dates: start: 20110725, end: 20110731
  6. DEPLIN (CALCIUIM LEVOMEFOLATE) [Concomitant]
  7. TOPAMAX [Concomitant]

REACTIONS (1)
  - OVERDOSE [None]
